FAERS Safety Report 21198390 (Version 2)
Quarter: 2022Q3

REPORT INFORMATION
  Report Type: Spontaneous
  Country: US (occurrence: US)
  Receive Date: 20220811
  Receipt Date: 20220820
  Transmission Date: 20221027
  Serious: Yes (Other)
  Sender: FDA-Public Use
  Company Number: US-MLMSERVICE-20220727-2909549-1

PATIENT
  Age: 60 Year
  Sex: Female

DRUGS (4)
  1. AZITHROMYCIN [Suspect]
     Active Substance: AZITHROMYCIN
     Indication: Mycobacterium avium complex infection
     Dosage: 1500 MILLIGRAM, EVERY WEEK, (ONE DOSE OF AZITHROMYCIN (500 MG) EVERY MONDAY, WEDNESDAY AND FRIDAY)
     Route: 048
  2. ETHAMBUTOL [Suspect]
     Active Substance: ETHAMBUTOL HYDROCHLORIDE
     Indication: Mycobacterium avium complex infection
     Dosage: 3600 MILLIGRAM, EVERY WEEK, ETHAMBUTOL (1200 MG) EVERY MONDAY, WEDNESDAY AND FRIDAY
     Route: 048
  3. RIFABUTIN [Suspect]
     Active Substance: RIFABUTIN
     Indication: Mycobacterium avium complex infection
     Dosage: 900 MILLIGRAM, EVERY WEEK, (ETHAMBUTOL (300 MG) EVERY MONDAY, WEDNESDAY AND FRIDAY)
     Route: 048
  4. VALACYCLOVIR HYDROCHLORIDE [Concomitant]
     Active Substance: VALACYCLOVIR HYDROCHLORIDE
     Indication: Oral herpes
     Dosage: 500 MILLIGRAM, ONCE A DAY, (CONTINUOUS, 500 MG DAILY)
     Route: 048

REACTIONS (4)
  - Brucellosis [Unknown]
  - Fatigue [Unknown]
  - Myalgia [Unknown]
  - Pyrexia [Unknown]
